FAERS Safety Report 19502327 (Version 1)
Quarter: 2021Q3

REPORT INFORMATION
  Report Type: Spontaneous
  Country: ES (occurrence: ES)
  Receive Date: 20210707
  Receipt Date: 20210707
  Transmission Date: 20211014
  Serious: Yes (Hospitalization)
  Sender: FDA-Public Use
  Company Number: ES-TEVA-2021-ES-1929727

PATIENT
  Age: 32 Year
  Sex: Male

DRUGS (1)
  1. AMOXICILINA/ACIDO CLAVULANICO 500 MG/125 MG COMPRIMIDO [Suspect]
     Active Substance: AMOXICILLIN\CLAVULANATE POTASSIUM
     Indication: URINARY TRACT INFECTION
     Dosage: UNIT DOSE :1 DOSAGE FORMS ,1 COMP/8H
     Route: 048
     Dates: start: 20200213, end: 20200215

REACTIONS (2)
  - Myocarditis [Recovered/Resolved]
  - Pericarditis [Recovered/Resolved]

NARRATIVE: CASE EVENT DATE: 20200214
